FAERS Safety Report 10464066 (Version 1)
Quarter: 2014Q3

REPORT INFORMATION
  Report Type: Spontaneous
  Country: CZ (occurrence: None)
  Receive Date: 20140917
  Receipt Date: 20140917
  Transmission Date: 20150326
  Serious: Yes (Hospitalization)
  Sender: FDA-Public Use
  Company Number: IPC201409-000471

PATIENT
  Age: 73 Year
  Sex: Female

DRUGS (8)
  1. FUROSEMIDE (FUROSEMIDE) (FUROSEMIDE) [Suspect]
     Active Substance: FUROSEMIDE
     Dosage: 40 MG PER DAY
  2. FENOFIBRATE (FENOFIBRATE) (FENOFIBRATE) [Suspect]
     Active Substance: FENOFIBRATE
     Indication: HYPERCHOLESTEROLAEMIA
  3. METOPROLOL TARTRATE (METOPROLOL TARTRATE) (METOPROLOL TARTRATE) [Suspect]
     Active Substance: METOPROLOL TARTRATE
     Indication: HYPERCHOLESTEROLAEMIA
  4. LEVOTHYROXINE (LEVOTHYROXINE) (LEVOTHYROXINE) [Suspect]
     Active Substance: LEVOTHYROXINE
  5. ASPIRIN. [Suspect]
     Active Substance: ASPIRIN
     Dosage: 100MG PER DAY.
  6. ATORVASTATIN (ATORVASTATIN) (ATORVASTATIN) [Suspect]
     Active Substance: ATORVASTATIN
     Indication: HYPERCHOLESTEROLAEMIA
  7. SIMVASTATIN (SIMVASTATIN) (SIMVASTATIN) [Suspect]
     Active Substance: SIMVASTATIN
     Indication: HYPERCHOLESTEROLAEMIA
  8. SPIRONOLACTONE. [Suspect]
     Active Substance: SPIRONOLACTONE
     Dosage: 25 MG PER DAY.

REACTIONS (1)
  - Polymyositis [None]
